FAERS Safety Report 11159265 (Version 1)
Quarter: 2015Q2

REPORT INFORMATION
  Report Type: Report from Study
  Country: BR (occurrence: BR)
  Receive Date: 20150603
  Receipt Date: 20150603
  Transmission Date: 20150821
  Serious: Yes (Other)
  Sender: FDA-Public Use
  Company Number: BR-GLAXOSMITHKLINE-BR2015GSK073168

PATIENT
  Age: 35 Year
  Sex: Female

DRUGS (1)
  1. BELIMUMAB [Suspect]
     Active Substance: BELIMUMAB
     Indication: SYSTEMIC LUPUS ERYTHEMATOSUS
     Dosage: UNK
     Route: 065

REACTIONS (6)
  - Skin disorder [Unknown]
  - Influenza [Unknown]
  - Diarrhoea [Unknown]
  - Immunodeficiency [Unknown]
  - Enteritis infectious [Unknown]
  - Intervertebral disc protrusion [Unknown]
